FAERS Safety Report 8515554-3 (Version None)
Quarter: 2012Q3

REPORT INFORMATION
  Report Type: 
  Country: None (occurrence: None)
  Receive Date: 20120717
  Receipt Date: 20120709
  Transmission Date: 20120928
  Serious: Yes (Other)
  Sender: FDA-Public Use
  Company Number: PHEH2011US07946

PATIENT
  Sex: Male

DRUGS (20)
  1. NORCO [Concomitant]
  2. SANDOSTATIN LAR [Suspect]
     Dosage: 30 MG, QW3
  3. PROZAC [Concomitant]
     Indication: DEPRESSION
  4. TERAZOSIN HCL [Concomitant]
     Indication: PROSTATE CANCER
  5. NEXIUM [Concomitant]
  6. THYROID TAB [Concomitant]
  7. METOPROLOL TARTRATE [Concomitant]
  8. GLIPIZIDE [Concomitant]
  9. ATORVASTATIN [Concomitant]
  10. SANDOSTATIN LAR [Suspect]
  11. SANDOSTATIN LAR [Suspect]
     Dosage: 30 MG, EVERY 3 WEEKS
     Route: 030
  12. NEXIUM [Concomitant]
  13. SANDOSTATIN LAR [Suspect]
     Dosage: 10 MG, UNK
  14. SANDOSTATIN LAR [Suspect]
     Dosage: 30 MG, 2 EVERY 3 WEEKS
  15. LANTUS [Concomitant]
     Indication: DIABETES MELLITUS
  16. CLOBETASOL PROPIONATE [Concomitant]
  17. SANDOSTATIN LAR [Suspect]
     Dosage: 20 MG, QW2
     Dates: start: 20020101
  18. LYRICA [Concomitant]
     Indication: PAIN IN EXTREMITY
  19. LIPITOR [Concomitant]
  20. DIOVAN [Concomitant]
     Indication: BLOOD PRESSURE

REACTIONS (9)
  - TERMINAL STATE [None]
  - DIARRHOEA [None]
  - NEOPLASM PROGRESSION [None]
  - NEEDLE ISSUE [None]
  - UNDERDOSE [None]
  - HEPATIC NEOPLASM MALIGNANT [None]
  - FLUSHING [None]
  - DRUG INEFFECTIVE [None]
  - CARDIAC DISORDER [None]
